FAERS Safety Report 5982140-9 (Version None)
Quarter: 2008Q4

REPORT INFORMATION
  Report Type: 
  Country: None (occurrence: None)
  Receive Date: 20081203
  Receipt Date: 20081120
  Transmission Date: 20090506
  Serious: Yes (Hospitalization)
  Sender: FDA-Public Use
  Company Number: DSA_32741_2008

PATIENT
  Sex: Male

DRUGS (1)
  1. CARDIZEM LA [Suspect]
     Indication: DRUG USE FOR UNKNOWN INDICATION
     Dosage: (180 MG QD ORAL)
     Route: 048

REACTIONS (1)
  - HOSPITALISATION [None]
